FAERS Safety Report 5272167-7 (Version None)
Quarter: 2007Q1

REPORT INFORMATION
  Report Type: 
  Country: None (occurrence: None)
  Receive Date: 20070322
  Receipt Date: 20070320
  Transmission Date: 20070707
  Serious: Yes (Death, Hospitalization)
  Sender: FDA-Public Use
  Company Number: US-BRISTOL-MYERS SQUIBB COMPANY-13719828

PATIENT
  Age: 76 Year
  Sex: Male
  Weight: 82 kg

DRUGS (11)
  1. COUMADIN [Suspect]
     Indication: ATRIAL FIBRILLATION
  2. COLCHICINE [Concomitant]
  3. LIPITOR [Concomitant]
  4. LASIX [Concomitant]
  5. HYDROCHLOROTHIAZIDE [Concomitant]
  6. SPIRIVA [Concomitant]
  7. LORTAB [Concomitant]
     Indication: MUSCULOSKELETAL PAIN
  8. PREDNISONE [Concomitant]
  9. ALBUTEROL [Concomitant]
     Route: 055
  10. WELLBUTRIN [Concomitant]
     Dates: start: 20061001
  11. POTASSIUM CHLORIDE [Concomitant]

REACTIONS (2)
  - CARDIAC FAILURE CONGESTIVE [None]
  - CHRONIC OBSTRUCTIVE PULMONARY DISEASE [None]
